FAERS Safety Report 7523877-X (Version None)
Quarter: 2011Q2

REPORT INFORMATION
  Report Type: 
  Country: None (occurrence: None)
  Receive Date: 20110603
  Receipt Date: 20110524
  Transmission Date: 20111010
  Serious: Yes (Other)
  Sender: FDA-Public Use
  Company Number: PL-GENENTECH-319553

PATIENT
  Age: 35 Year
  Sex: Female

DRUGS (9)
  1. VINCRISTINE [Concomitant]
     Indication: PRODUCT USED FOR UNKNOWN INDICATION
     Dosage: UNK
     Dates: start: 20090801
  2. VINCRISTINE [Concomitant]
     Dosage: UNK
     Dates: start: 20090901
  3. PREDNISONE [Concomitant]
     Dosage: UNK
     Dates: start: 20090901
  4. RITUXIMAB [Suspect]
     Indication: DIFFUSE LARGE B-CELL LYMPHOMA
     Dosage: UNK
     Route: 065
     Dates: start: 20090910
  5. DAUNORUBICIN HCL [Concomitant]
     Dosage: UNK
     Dates: start: 20090901
  6. PREDNISONE [Concomitant]
     Indication: PRODUCT USED FOR UNKNOWN INDICATION
     Dosage: UNK
     Dates: start: 20090801
  7. CYCLOPHOSPHAMIDE [Concomitant]
     Dosage: UNK
     Dates: start: 20090901
  8. DAUNORUBICIN HCL [Concomitant]
     Indication: PRODUCT USED FOR UNKNOWN INDICATION
     Dosage: UNK
     Dates: start: 20090801
  9. CYCLOPHOSPHAMIDE [Concomitant]
     Indication: PRODUCT USED FOR UNKNOWN INDICATION
     Dosage: UNK
     Dates: start: 20090801

REACTIONS (9)
  - LYMPHADENOPATHY [None]
  - WOUND INFECTION [None]
  - BRAIN SCAN ABNORMAL [None]
  - BRAIN NEOPLASM [None]
  - SPLENIC RUPTURE [None]
  - MYCETOMA MYCOTIC [None]
  - ALOPECIA [None]
  - ABSCESS INTESTINAL [None]
  - PYREXIA [None]
